FAERS Safety Report 11157269 (Version 1)
Quarter: 2015Q2

REPORT INFORMATION
  Report Type: Spontaneous
  Country: JP (occurrence: JP)
  Receive Date: 20150602
  Receipt Date: 20150602
  Transmission Date: 20150821
  Serious: Yes (Other)
  Sender: FDA-Public Use
  Company Number: JP-BRISTOL-MYERS SQUIBB COMPANY-BMS-2015-034332

PATIENT
  Age: 75 Year
  Sex: Female

DRUGS (3)
  1. ANTHROBIN P [Suspect]
     Active Substance: ANTITHROMBIN III HUMAN
     Indication: INFECTION
     Dosage: UNK
     Route: 065
     Dates: start: 20130530, end: 20130602
  2. AZACTAM [Suspect]
     Active Substance: AZTREONAM
     Indication: INFECTION
     Dosage: UNK
     Route: 042
     Dates: start: 20130530, end: 20130607
  3. ZYVOX [Suspect]
     Active Substance: LINEZOLID
     Indication: INFECTION
     Dosage: 1200 MG, QD
     Route: 042
     Dates: start: 20130530, end: 20130606

REACTIONS (1)
  - Cardiac failure congestive [Recovered/Resolved]

NARRATIVE: CASE EVENT DATE: 20130620
